FAERS Safety Report 25664566 (Version 1)
Quarter: 2025Q3

REPORT INFORMATION
  Report Type: Spontaneous
  Country: US (occurrence: US)
  Receive Date: 20250811
  Receipt Date: 20250811
  Transmission Date: 20251021
  Serious: No
  Sender: FERRING
  Company Number: US-FERRINGPH-2024FE05449

PATIENT
  Sex: Female

DRUGS (1)
  1. ENDOMETRIN [Suspect]
     Active Substance: PROGESTERONE
     Indication: Product used for unknown indication
     Route: 065

REACTIONS (4)
  - Burning sensation [Unknown]
  - Pruritus [Unknown]
  - Erythema [Unknown]
  - Swelling [Unknown]
